FAERS Safety Report 24760569 (Version 1)
Quarter: 2024Q4

REPORT INFORMATION
  Report Type: Spontaneous
  Country: US (occurrence: None)
  Receive Date: 20241219
  Receipt Date: 20241219
  Transmission Date: 20250115
  Serious: Yes (Life-Threatening, Disabling, Other)
  Sender: Public
  Company Number: None

PATIENT
  Age: 24 Year
  Sex: Male
  Weight: 112.5 kg

DRUGS (2)
  1. PREGNYL [Suspect]
     Active Substance: CHORIOGONADOTROPIN ALFA
     Indication: Sperm concentration decreased
     Dosage: OTHER FREQUENCY : TWICE PER WEEK;?OTHER ROUTE : INJECTION INTO STOMACH;?
     Route: 050
     Dates: start: 20230706, end: 20230902
  2. PREGNYL [Suspect]
     Active Substance: CHORIOGONADOTROPIN ALFA
     Indication: Testicular atrophy

REACTIONS (3)
  - Testicular injury [None]
  - Malignant neoplasm progression [None]
  - Testis cancer [None]

NARRATIVE: CASE EVENT DATE: 20240601
